FAERS Safety Report 9800702 (Version 2)
Quarter: 2014Q1

REPORT INFORMATION
  Report Type: Spontaneous
  Country: JP (occurrence: JP)
  Receive Date: 20140107
  Receipt Date: 20140107
  Transmission Date: 20141002
  Serious: Yes (Death, Other)
  Sender: FDA-Public Use
  Company Number: JP-ROCHE-1322002

PATIENT
  Age: 33 Year
  Sex: Male
  Weight: 88 kg

DRUGS (3)
  1. AVASTIN [Suspect]
     Indication: ANAPLASTIC ASTROCYTOMA
     Route: 041
     Dates: start: 20130716, end: 20131126
  2. TEMODAL [Concomitant]
     Indication: ANAPLASTIC ASTROCYTOMA
     Route: 048
     Dates: start: 20130307, end: 2013
  3. NASEA [Concomitant]
     Dosage: DOSAGE IS UNCERTAIN.
     Route: 048
     Dates: start: 20130527, end: 2013

REACTIONS (2)
  - Pulmonary embolism [Fatal]
  - Loss of consciousness [Recovered/Resolved]
